FAERS Safety Report 22140611 (Version 4)
Quarter: 2023Q2

REPORT INFORMATION
  Report Type: Spontaneous
  Country: US (occurrence: US)
  Receive Date: 20230327
  Receipt Date: 20230529
  Transmission Date: 20230722
  Serious: Yes (Hospitalization)
  Sender: FDA-Public Use
  Company Number: US-GSK-US2023042006

PATIENT

DRUGS (3)
  1. NUCALA [Suspect]
     Active Substance: MEPOLIZUMAB
     Indication: Asthma
     Dosage: UNK, MO (1  INJECTION PER MONTH)
     Dates: start: 2022
  2. TRAMADOL [Concomitant]
     Active Substance: TRAMADOL
     Indication: Pain
     Dosage: UNK  (TAKEN AS NEEDED)
     Dates: start: 20230214
  3. GABAPENTIN [Concomitant]
     Active Substance: GABAPENTIN
     Indication: Urinary tract disorder
     Dosage: UNK , BID (TAKING AS NEEDED)
     Dates: start: 2017

REACTIONS (3)
  - Knee arthroplasty [Unknown]
  - Pain [Unknown]
  - Product dose omission issue [Unknown]

NARRATIVE: CASE EVENT DATE: 20230213
